FAERS Safety Report 8256871-4 (Version None)
Quarter: 2012Q1

REPORT INFORMATION
  Report Type: 
  Country: None (occurrence: None)
  Receive Date: 20120322
  Receipt Date: 20120215
  Transmission Date: 20120608
  Serious: Yes (Hospitalization)
  Sender: FDA-Public Use
  Company Number: UTC-015637

PATIENT
  Sex: Female
  Weight: 58.18 kg

DRUGS (2)
  1. REVATIO [Concomitant]
  2. TYVASO [Suspect]
     Dosage: 144 MCG (36 MCG, 4 IN 1 D) , INHALATION
     Route: 055
     Dates: start: 20110811

REACTIONS (2)
  - OXYGEN SATURATION DECREASED [None]
  - DYSPNOEA [None]
